FAERS Safety Report 7098516-5 (Version None)
Quarter: 2010Q4

REPORT INFORMATION
  Report Type: 
  Country: None (occurrence: None)
  Receive Date: 20101112
  Receipt Date: 20100520
  Transmission Date: 20110411
  Serious: No
  Sender: FDA-Public Use
  Company Number: US-KINGPHARMUSA00001-K201000630

PATIENT
  Sex: Male

DRUGS (1)
  1. BICILLIN L-A [Suspect]
     Dosage: UNK IU, SINGLE
     Dates: start: 20100519, end: 20100519

REACTIONS (2)
  - NO ADVERSE EVENT [None]
  - POOR QUALITY DRUG ADMINISTERED [None]
